FAERS Safety Report 9490879 (Version 2)
Quarter: 2014Q1

REPORT INFORMATION
  Report Type: Spontaneous
  Country: US (occurrence: US)
  Receive Date: 20130830
  Receipt Date: 20140314
  Transmission Date: 20141002
  Serious: No
  Sender: FDA-Public Use
  Company Number: US-PFIZER INC-2013246746

PATIENT
  Age: 74 Year
  Sex: Female
  Weight: 95 kg

DRUGS (13)
  1. SOMAVERT [Suspect]
     Indication: ACROMEGALY
     Dosage: 10 MG, RECONSTITUTE VIAL AS DIRECTED AND INJECT 10 MG SUBCUTANEOUSLY DAILY
     Route: 058
  2. SOMAVERT [Suspect]
     Indication: GIGANTISM
     Dosage: 20 MG, DAILY
     Route: 058
     Dates: start: 20130716
  3. DICLOFENAC [Concomitant]
     Dosage: 100 MG ER, UNK
  4. BUMETANIDE [Concomitant]
     Dosage: 1 MG, UNK
  5. GLIMEPIRIDE [Concomitant]
     Dosage: 1 MG, UNK
  6. LOSARTAN POTASSIUM W/HYDROCHLOROTHIAZIDE [Concomitant]
     Dosage: UNK, LOSARTAN 50/ HYDROCHLOROTHIAZIDE 12.5
  7. LEVOTHYROXINE [Concomitant]
     Dosage: 50 UG, UNK
  8. LABETALOL [Concomitant]
     Dosage: 100 MG, UNK
  9. LIOTHYRONINE [Concomitant]
     Dosage: 5 UG, UNK
  10. HYDROCORT [Concomitant]
     Dosage: 10 MG, UNK
  11. XARELTO [Concomitant]
     Dosage: 20 MG, UNK
  12. TYLENOL [Concomitant]
     Dosage: 325 MG, UNK
  13. NAUSEA RELIEF LIQUID [Concomitant]

REACTIONS (8)
  - Nausea [Unknown]
  - Decreased appetite [Unknown]
  - Somnolence [Unknown]
  - Fatigue [Unknown]
  - Paraesthesia [Unknown]
  - Hypoaesthesia [Unknown]
  - Nasal congestion [Unknown]
  - Rhinorrhoea [Unknown]
